FAERS Safety Report 17121718 (Version 2)
Quarter: 2020Q1

REPORT INFORMATION
  Report Type: Spontaneous
  Country: ES (occurrence: ES)
  Receive Date: 20191206
  Receipt Date: 20200302
  Transmission Date: 20200409
  Serious: Yes (Hospitalization, Other)
  Sender: FDA-Public Use
  Company Number: NVSC2019ES053401

PATIENT
  Age: 5 Year
  Sex: Female

DRUGS (6)
  1. TACROLIMUS. [Suspect]
     Active Substance: TACROLIMUS
     Indication: RENAL TRANSPLANT
     Dosage: 18 MG, QD
     Route: 048
     Dates: start: 20190926, end: 20190927
  2. TACROLIMUS. [Suspect]
     Active Substance: TACROLIMUS
     Dosage: UNK
     Route: 042
  3. TACROLIMUS. [Suspect]
     Active Substance: TACROLIMUS
     Dosage: UNK
     Route: 048
  4. TACROLIMUS. [Suspect]
     Active Substance: TACROLIMUS
     Dosage: 2 MG, QD
     Route: 042
     Dates: start: 20190927, end: 20190927
  5. ADVAGRAF [Suspect]
     Active Substance: TACROLIMUS
     Indication: RENAL TRANSPLANT
     Dosage: UNK
     Route: 065
     Dates: start: 20181210, end: 201902
  6. TACROLIMUS. [Suspect]
     Active Substance: TACROLIMUS
     Dosage: UNK
     Route: 048
     Dates: start: 20190408

REACTIONS (3)
  - Lymphoproliferative disorder [Unknown]
  - Product use issue [Unknown]
  - Immunosuppressant drug level increased [Unknown]

NARRATIVE: CASE EVENT DATE: 20181210
